FAERS Safety Report 16154863 (Version 1)
Quarter: 2019Q2

REPORT INFORMATION
  Report Type: Spontaneous
  Country: US (occurrence: US)
  Receive Date: 20190403
  Receipt Date: 20190403
  Transmission Date: 20190711
  Serious: Yes (Hospitalization)
  Sender: FDA-Public Use
  Company Number: US-LUNDBECK-DKLU2060823

PATIENT
  Age: 37 Year
  Sex: Male
  Weight: 64 kg

DRUGS (12)
  1. FLONASE [Concomitant]
     Active Substance: FLUTICASONE PROPIONATE
     Indication: PRODUCT USED FOR UNKNOWN INDICATION
     Dosage: 50 MCG/ACT
     Route: 045
     Dates: start: 20160901
  2. SABRIL [Suspect]
     Active Substance: VIGABATRIN
     Indication: IDIOPATHIC GENERALISED EPILEPSY
     Route: 048
     Dates: start: 20181030
  3. CHRONULAC [Concomitant]
     Active Substance: LACTULOSE
     Indication: CONSTIPATION
     Dosage: 10GM/15ML, PRN
     Route: 048
     Dates: start: 20190121
  4. ATIVAN [Concomitant]
     Active Substance: LORAZEPAM
     Indication: SEIZURE
     Dosage: NOT TO EXCEED 2 TABLETS/24 HOURS
     Route: 065
     Dates: start: 20190124
  5. SABRIL [Suspect]
     Active Substance: VIGABATRIN
     Indication: EPILEPSY
     Route: 048
     Dates: start: 20190212
  6. MAGNESIUM CITRATE. [Concomitant]
     Active Substance: MAGNESIUM CITRATE
     Indication: CONSTIPATION
     Dosage: 1.745 GM/30 ML SOLUTION
     Route: 048
     Dates: start: 20190208
  7. ONFI [Concomitant]
     Active Substance: CLOBAZAM
     Indication: PRODUCT USED FOR UNKNOWN INDICATION
     Route: 065
     Dates: start: 20190123
  8. FELBATOL [Concomitant]
     Active Substance: FELBAMATE
     Route: 048
     Dates: start: 20181213
  9. FELBATOL [Concomitant]
     Active Substance: FELBAMATE
     Indication: PRODUCT USED FOR UNKNOWN INDICATION
     Route: 048
     Dates: start: 20181213
  10. ONFI [Concomitant]
     Active Substance: CLOBAZAM
     Route: 065
     Dates: start: 20190123
  11. LIORESAL [Concomitant]
     Active Substance: BACLOFEN
     Indication: MUSCLE SPASMS
     Route: 048
     Dates: start: 20180813
  12. FELBATOL [Concomitant]
     Active Substance: FELBAMATE
     Route: 048
     Dates: start: 20181213

REACTIONS (2)
  - Status epilepticus [Recovered/Resolved]
  - Product dose omission [Unknown]

NARRATIVE: CASE EVENT DATE: 201902
